FAERS Safety Report 21064394 (Version 1)
Quarter: 2022Q3

REPORT INFORMATION
  Report Type: Spontaneous
  Country: US (occurrence: None)
  Receive Date: 20220709
  Receipt Date: 20220709
  Transmission Date: 20221026
  Serious: Yes (Hospitalization)
  Sender: FDA-Public Use
  Company Number: None

PATIENT
  Age: 75 Year
  Sex: Female
  Weight: 65.32 kg

DRUGS (7)
  1. TEMOZOLOMIDE [Suspect]
     Active Substance: TEMOZOLOMIDE
     Indication: Brain neoplasm malignant
     Dosage: FREQUENCY : DAILY;?
     Route: 048
     Dates: start: 20220516, end: 20220516
  2. TEMOZOLOMIDE [Suspect]
     Active Substance: TEMOZOLOMIDE
     Indication: Brain neoplasm malignant
     Dates: start: 20220516
  3. TEMOZOLOMIDE [Suspect]
     Active Substance: TEMOZOLOMIDE
     Indication: Brain neoplasm malignant
  4. METFORMIN HYDROCHLORIDE [Concomitant]
     Active Substance: METFORMIN HYDROCHLORIDE
  5. SYNTHROID [Concomitant]
     Active Substance: LEVOTHYROXINE SODIUM
  6. NORVASC [Concomitant]
     Active Substance: AMLODIPINE BESYLATE
  7. KEPPRA XR [Concomitant]
     Active Substance: LEVETIRACETAM

REACTIONS (14)
  - Nausea [None]
  - Vomiting [None]
  - Hypotension [None]
  - Pyrexia [None]
  - Delirium [None]
  - Blood lactic acid increased [None]
  - Liver function test increased [None]
  - Infection [None]
  - Urinary tract infection [None]
  - Coeliac disease [None]
  - Diverticulitis [None]
  - Manufacturing materials issue [None]
  - Gastrointestinal tract irritation [None]
  - Bacterial translocation [None]
